FAERS Safety Report 10277542 (Version 1)
Quarter: 2014Q3

REPORT INFORMATION
  Report Type: Spontaneous
  Country: JM (occurrence: JM)
  Receive Date: 20140703
  Receipt Date: 20140703
  Transmission Date: 20150326
  Serious: Yes (Hospitalization)
  Sender: FDA-Public Use
  Company Number: JM-GLAXOSMITHKLINE-A1079499A

PATIENT
  Age: 31 Year
  Sex: Female

DRUGS (1)
  1. WELLBUTRIN XL [Suspect]
     Active Substance: BUPROPION HYDROCHLORIDE
     Indication: MAJOR DEPRESSION
     Dosage: 150MG PER DAY
     Route: 048
     Dates: start: 20140623

REACTIONS (8)
  - Fear [Unknown]
  - Emotional distress [Unknown]
  - Restlessness [Unknown]
  - Conversion disorder [Unknown]
  - Nervousness [Unknown]
  - Screaming [Unknown]
  - Anxiety [Unknown]
  - Crying [Unknown]
